FAERS Safety Report 8471912-7 (Version None)
Quarter: 2012Q2

REPORT INFORMATION
  Report Type: 
  Country: None (occurrence: None)
  Receive Date: 20120323
  Receipt Date: 20111025
  Transmission Date: 20120825
  Serious: Yes (Other)
  Sender: FDA-Public Use
  Company Number: 163-21880-11103199

PATIENT
  Age: 81 Year
  Sex: Female
  Weight: 4.5723 kg

DRUGS (14)
  1. MULTIVITAMIN [Concomitant]
  2. GAS-X (DIMETICONE, ACTIVATED) [Concomitant]
  3. NEXIUM [Concomitant]
  4. POTASSIUM CHLORIDE [Concomitant]
  5. ZOMETA [Concomitant]
  6. SODIUM CHLORIDE [Concomitant]
  7. VITAMIN B12 [Concomitant]
  8. REVLIMID [Suspect]
     Indication: MULTIPLE MYELOMA
     Dosage: 10 MG, X 21 DAYS, PO, 5 MG, X 21 DAYS, PO
     Route: 048
     Dates: start: 20100208
  9. BENADRYL [Concomitant]
  10. NORVASC [Concomitant]
  11. REFRESH PLUS [Concomitant]
  12. ASPIRIN [Concomitant]
  13. NADOLOL [Concomitant]
  14. BISMUTH SUBSALICYLATE [Concomitant]

REACTIONS (2)
  - FULL BLOOD COUNT DECREASED [None]
  - HAEMOGLOBIN DECREASED [None]
